FAERS Safety Report 18019867 (Version 2)
Quarter: 2020Q3

REPORT INFORMATION
  Report Type: Spontaneous
  Country: US (occurrence: US)
  Receive Date: 20200714
  Receipt Date: 20200717
  Transmission Date: 20201103
  Serious: Yes (Other)
  Sender: FDA-Public Use
  Company Number: US-PFIZER INC-2020268377

PATIENT
  Age: 42 Year
  Sex: Female

DRUGS (2)
  1. LETROZOLE. [Concomitant]
     Active Substance: LETROZOLE
     Dosage: UNK
  2. IBRANCE [Suspect]
     Active Substance: PALBOCICLIB
     Indication: BREAST CANCER
     Dosage: 125 MG, CYCLIC (1 TABLET DAILY)
     Route: 048
     Dates: start: 201806

REACTIONS (4)
  - Burning sensation [Unknown]
  - Erythema [Unknown]
  - Feeling hot [Unknown]
  - Neuropathy peripheral [Unknown]
